FAERS Safety Report 14143396 (Version 1)
Quarter: 2017Q4

REPORT INFORMATION
  Report Type: Spontaneous
  Country: US (occurrence: US)
  Receive Date: 20171030
  Receipt Date: 20171030
  Transmission Date: 20180321
  Serious: Yes (Other)
  Sender: FDA-Public Use
  Company Number: US-ALKERMES INC.-ALK-2017-004578

PATIENT
  Sex: Female

DRUGS (3)
  1. NOVOCAINE [Suspect]
     Active Substance: PROCAINE
     Indication: ELBOW OPERATION
  2. VIVITROL [Suspect]
     Active Substance: NALTREXONE
     Indication: PRODUCT USED FOR UNKNOWN INDICATION
     Dosage: 380 MG, QMO
     Route: 030
     Dates: start: 201506
  3. NOVOCAINE [Suspect]
     Active Substance: PROCAINE
     Indication: TOOTH INFECTION

REACTIONS (4)
  - Tooth infection [Unknown]
  - Elbow operation [Unknown]
  - Feeling abnormal [Unknown]
  - Splinter [Unknown]

NARRATIVE: CASE EVENT DATE: 201510
